FAERS Safety Report 5254570-4 (Version None)
Quarter: 2007Q1

REPORT INFORMATION
  Report Type: 
  Country: None (occurrence: None)
  Receive Date: 20070302
  Receipt Date: 20070223
  Transmission Date: 20070707
  Serious: Yes (Death, Other)
  Sender: FDA-Public Use
  Company Number: JP-MERCK-0702USA03374

PATIENT
  Age: 56 Year
  Sex: Male
  Weight: 58 kg

DRUGS (8)
  1. INDOCIN [Suspect]
     Indication: PUSTULAR PSORIASIS
     Route: 048
  2. TIGASON [Suspect]
     Indication: PUSTULAR PSORIASIS
     Route: 048
  3. ROXITHROMYCIN [Suspect]
     Indication: PUSTULAR PSORIASIS
     Route: 048
  4. TACALCITOL [Suspect]
     Indication: PUSTULAR PSORIASIS
     Route: 061
  5. DIFLUPREDNATE [Suspect]
     Indication: PUSTULAR PSORIASIS
     Route: 061
  6. BETAMETHASONE [Suspect]
     Indication: PUSTULAR PSORIASIS
     Route: 061
  7. [THERAPY UNSPECIFIED] [Suspect]
     Indication: PUSTULAR PSORIASIS
     Route: 061
  8. FUROSEMIDE [Suspect]
     Indication: OEDEMA PERIPHERAL
     Route: 048

REACTIONS (12)
  - ACQUIRED HAEMOPHILIA [None]
  - ACTIVATED PARTIAL THROMBOPLASTIN TIME PROLONGED [None]
  - BLOOD PRESSURE DECREASED [None]
  - CARDIO-RESPIRATORY ARREST [None]
  - COAGULATION TIME PROLONGED [None]
  - COMPARTMENT SYNDROME [None]
  - DEPRESSED LEVEL OF CONSCIOUSNESS [None]
  - HAEMATOMA [None]
  - HAEMORRHOIDAL HAEMORRHAGE [None]
  - MYOGLOBIN BLOOD INCREASED [None]
  - RENAL TUBULAR DISORDER [None]
  - TACHYCARDIA [None]
